FAERS Safety Report 5109215-0 (Version None)
Quarter: 2006Q3

REPORT INFORMATION
  Report Type: 
  Country: None (occurrence: None)
  Receive Date: 20060918
  Receipt Date: 20060829
  Transmission Date: 20061208
  Serious: Yes (Other)
  Sender: FDA-Public Use
  Company Number: M-06-0727

PATIENT
  Age: 6 Week
  Sex: Female
  Weight: 1.1 kg

DRUGS (2)
  1. SSKI 1 G/ML (USL) [Suspect]
     Dosage: SEE IMAGE
     Route: 048
     Dates: end: 20060819
  2. SSKI 1 G/ML (USL) [Suspect]
     Dosage: SEE IMAGE
     Route: 048
     Dates: start: 20060712, end: 20060822

REACTIONS (8)
  - CHROMATURIA [None]
  - FAECES DISCOLOURED [None]
  - FEEDING DISORDER OF INFANCY OR EARLY CHILDHOOD [None]
  - INCORRECT DOSE ADMINISTERED [None]
  - LETHARGY [None]
  - NECROTISING COLITIS [None]
  - THYROXINE DECREASED [None]
  - WRONG TECHNIQUE IN DRUG USAGE PROCESS [None]
